FAERS Safety Report 4316725-2 (Version None)
Quarter: 2004Q1

REPORT INFORMATION
  Report Type: 
  Country: None (occurrence: None)
  Receive Date: 20040311
  Receipt Date: 20040301
  Transmission Date: 20041129
  Serious: Yes (Hospitalization)
  Sender: FDA-Public Use
  Company Number: 2004014136

PATIENT
  Age: 83 Year
  Sex: Male
  Weight: 79.8331 kg

DRUGS (1)
  1. KAOPECTATE (BISMUTH SUBSALICYLATE) [Suspect]
     Indication: DIARRHOEA
     Dosage: 3/4 OF AN 8 OZ BOTTLE IN 4-5 HOURS, ORAL
     Route: 048
     Dates: start: 20040225, end: 20040225

REACTIONS (3)
  - DIVERTICULITIS [None]
  - DRUG INEFFECTIVE [None]
  - FAECES DISCOLOURED [None]
